FAERS Safety Report 11914794 (Version 1)
Quarter: 2016Q1

REPORT INFORMATION
  Report Type: Spontaneous
  Country: US (occurrence: US)
  Receive Date: 20160113
  Receipt Date: 20160113
  Transmission Date: 20160526
  Serious: Yes (Death)
  Sender: FDA-Public Use
  Company Number: US-MALLINCKRODT-T201505967

PATIENT
  Age: 64 Year
  Sex: Female

DRUGS (4)
  1. ZOLPIDEM [Suspect]
     Active Substance: ZOLPIDEM\ZOLPIDEM TARTRATE
  2. IMIPRAMINE PAMOATE. [Suspect]
     Active Substance: IMIPRAMINE PAMOATE
     Dosage: UNK
     Route: 048
  3. LEVOTHYROXINE. [Suspect]
     Active Substance: LEVOTHYROXINE
  4. LITHIUM. [Suspect]
     Active Substance: LITHIUM

REACTIONS (1)
  - Completed suicide [Fatal]
